FAERS Safety Report 5585607-0 (Version None)
Quarter: 2008Q1

REPORT INFORMATION
  Report Type: 
  Country: None (occurrence: None)
  Receive Date: 20080109
  Receipt Date: 20071203
  Transmission Date: 20080703
  Serious: No
  Sender: FDA-Public Use
  Company Number: US-MERCK-0711USA04421

PATIENT
  Age: 54 Year
  Sex: Male

DRUGS (5)
  1. HYDRODIURIL [Suspect]
     Indication: RENAL ARTERY STENOSIS
     Route: 048
  2. HYDRODIURIL [Suspect]
     Indication: ARTERIOSCLEROSIS
     Route: 048
  3. ATENOLOL [Suspect]
     Route: 065
  4. AMLODIPINE BESYLATE [Suspect]
     Route: 065
  5. HYDRALAZINE [Suspect]
     Route: 065

REACTIONS (1)
  - DRUG INEFFECTIVE [None]
